FAERS Safety Report 7298103-X (Version None)
Quarter: 2011Q1

REPORT INFORMATION
  Report Type: 
  Country: None (occurrence: None)
  Receive Date: 20110217
  Receipt Date: 20110209
  Transmission Date: 20110831
  Serious: Yes (Other)
  Sender: FDA-Public Use
  Company Number: CA-JNJFOC-20100503739

PATIENT
  Sex: Male
  Weight: 99 kg

DRUGS (5)
  1. REMICADE [Suspect]
     Indication: COLITIS ULCERATIVE
     Route: 042
  2. REMICADE [Suspect]
     Route: 042
  3. REMICADE [Suspect]
     Indication: RHEUMATOID ARTHRITIS
     Route: 042
  4. REMICADE [Suspect]
     Route: 042
  5. METHOTREXATE [Concomitant]
     Route: 058

REACTIONS (3)
  - NASAL SEPTUM DEVIATION [None]
  - SINUSITIS [None]
  - EPISTAXIS [None]
